FAERS Safety Report 4597062-8 (Version None)
Quarter: 2005Q1

REPORT INFORMATION
  Report Type: 
  Country: None (occurrence: None)
  Receive Date: 20050301
  Receipt Date: 20050209
  Transmission Date: 20050727
  Serious: Yes (Hospitalization)
  Sender: FDA-Public Use
  Company Number: F01200500246

PATIENT
  Age: 36 Year
  Sex: Male

DRUGS (5)
  1. (OXALIPLATIN) - SOLUTION - MG/M2 [Suspect]
     Indication: PANCREATIC CARCINOMA
     Dosage: 100 MG/M2 Q2W INTRAVENOUS NOS
     Route: 042
     Dates: start: 20050111, end: 20050111
  2. (GEMCITABINE) - SOLUTION - 1000 MG/M2 [Suspect]
     Dosage: 1000 MG/M2 Q2W INTRAVENOUS NOS
     Route: 042
     Dates: start: 20050110, end: 20050110
  3. ZEFIX (LAMIVUDINE) [Concomitant]
  4. ONDANSETRON HYDROCHLORIDE [Concomitant]
  5. PRIMPERAN TAB [Concomitant]

REACTIONS (7)
  - CACHEXIA [None]
  - ESCHERICHIA SEPSIS [None]
  - GENERAL PHYSICAL HEALTH DETERIORATION [None]
  - NAUSEA [None]
  - RESPIRATORY DISORDER [None]
  - WEIGHT DECREASED [None]
  - WHITE BLOOD CELL COUNT DECREASED [None]
